FAERS Safety Report 7530565-2 (Version None)
Quarter: 2011Q2

REPORT INFORMATION
  Report Type: 
  Country: None (occurrence: None)
  Receive Date: 20110607
  Receipt Date: 20090706
  Transmission Date: 20111010
  Serious: Yes (Hospitalization, Other)
  Sender: FDA-Public Use
  Company Number: US-BAYER-2011-009852

PATIENT
  Age: 75 Year
  Sex: Female
  Weight: 71.746 kg

DRUGS (27)
  1. DILTIAZEM [Concomitant]
     Dosage: 240 MG, QD
     Route: 048
  2. TRASYLOL [Suspect]
     Indication: TRICUSPID VALVE REPAIR
     Dosage: 400 CC/HOUR LOADING DOSE
     Route: 042
     Dates: start: 20050622, end: 20050622
  3. TIAZAC [Concomitant]
     Dosage: 240 MG, QD
     Route: 048
  4. PLATELETS [Concomitant]
     Dosage: 1 UNIT
     Route: 042
     Dates: start: 20050622, end: 20050622
  5. NORVASC [Concomitant]
     Dosage: 5 MG
  6. PROTAMINE SULFATE [Concomitant]
     Dosage: 350 MG
     Route: 042
     Dates: start: 20050622, end: 20050622
  7. HEPARIN [Concomitant]
     Dosage: 450 MG
     Route: 042
     Dates: start: 20050622, end: 20050622
  8. PLASMA [Concomitant]
     Dosage: 4 UNITS
     Route: 042
     Dates: start: 20050622, end: 20050622
  9. KEPPRA [Concomitant]
     Dosage: 500 MG
  10. LASIX [Concomitant]
     Dosage: 40 MG, QD
     Route: 048
  11. ASPIRIN [Concomitant]
  12. DOPAMINE HCL [Concomitant]
     Dosage: 2.5 MCG/KG/MIN
     Route: 042
     Dates: start: 20050622, end: 20050622
  13. TRASYLOL [Suspect]
     Indication: ECHOCARDIOGRAM
     Dosage: 50 CC/HOUR
     Route: 042
     Dates: start: 20050622, end: 20050622
  14. DARVOCET [Concomitant]
  15. PROTONIX [Concomitant]
     Dosage: 40 MG
  16. ATACAND [Concomitant]
     Dosage: 16 MG, QD
     Route: 048
  17. TRASYLOL [Suspect]
     Indication: CARDIAC ABLATION
  18. HYZAAR [Concomitant]
     Dosage: 25 MG, QD
  19. METOPROLOL SUCCINATE [Concomitant]
     Dosage: 50 MG
  20. ALPRAZOLAM [Concomitant]
     Dosage: 0.25 MG
     Route: 048
  21. AVAPRO [Concomitant]
     Dosage: 75 MG
     Route: 048
  22. TRASYLOL [Suspect]
     Indication: MITRAL VALVE REPLACEMENT
     Dosage: 1 ML TEST DOSE
     Route: 042
     Dates: start: 20050622, end: 20050622
  23. DIGOXIN [Concomitant]
     Dosage: 0.125 MG, QD
     Route: 048
  24. COUMADIN [Concomitant]
     Dosage: 10 MG X 3 DAYS AND 4 MG X 4 DAYS PER WEEK
     Route: 048
  25. LABETALOL [Concomitant]
     Dosage: 300 MG, TID
     Route: 048
  26. ZINACEF [Concomitant]
     Dosage: 1.5 GM
     Route: 042
     Dates: start: 20050622, end: 20050622
  27. RED BLOOD CELLS [Concomitant]
     Dosage: 1 UNIT
     Route: 042
     Dates: start: 20050622, end: 20050622

REACTIONS (12)
  - RENAL INJURY [None]
  - RENAL IMPAIRMENT [None]
  - ANXIETY [None]
  - PAIN [None]
  - CEREBROVASCULAR ACCIDENT [None]
  - UNEVALUABLE EVENT [None]
  - MULTI-ORGAN FAILURE [None]
  - RENAL FAILURE [None]
  - INJURY [None]
  - STRESS [None]
  - FEAR [None]
  - EMOTIONAL DISTRESS [None]
